FAERS Safety Report 10216430 (Version 1)
Quarter: 2014Q2

REPORT INFORMATION
  Report Type: Spontaneous
  Country: US (occurrence: US)
  Receive Date: 20140604
  Receipt Date: 20140604
  Transmission Date: 20141212
  Serious: No
  Sender: FDA-Public Use
  Company Number: US-BAYER-2014-079126

PATIENT
  Age: 25 Year
  Sex: Female
  Weight: 51.25 kg

DRUGS (1)
  1. ALEVE CAPLET [Suspect]
     Indication: HEADACHE
     Dosage: UNK
     Dates: end: 20140516

REACTIONS (6)
  - Paraesthesia oral [None]
  - Lip swelling [None]
  - Hypoaesthesia oral [None]
  - Lip disorder [None]
  - Hypersensitivity [Not Recovered/Not Resolved]
  - Lip exfoliation [None]
